FAERS Safety Report 8302752 (Version 3)
Quarter: 2013Q4

REPORT INFORMATION
  Report Type: Spontaneous
  Country: US (occurrence: US)
  Receive Date: 20111220
  Receipt Date: 20131203
  Transmission Date: 20140711
  Serious: Yes (Hospitalization)
  Sender: FDA-Public Use
  Company Number: US-GLAXOSMITHKLINE-A0935588A

PATIENT
  Age: 69 Year
  Sex: Male

DRUGS (1)
  1. AVANDIA [Suspect]
     Indication: DIABETES MELLITUS
     Dosage: 8MG PER DAY
     Route: 048
     Dates: start: 20011016, end: 20050425

REACTIONS (10)
  - Myocardial infarction [Unknown]
  - Myocardial ischaemia [Unknown]
  - Cardiac valve disease [Unknown]
  - Carotid artery disease [Unknown]
  - Atrial fibrillation [Unknown]
  - Atrioventricular block second degree [Unknown]
  - Atrial flutter [Unknown]
  - Coronary artery disease [Unknown]
  - Cardiovascular disorder [Unknown]
  - Arrhythmia [Unknown]
